FAERS Safety Report 20082080 (Version 1)
Quarter: 2021Q4

REPORT INFORMATION
  Report Type: Spontaneous
  Country: US (occurrence: None)
  Receive Date: 20211117
  Receipt Date: 20211117
  Transmission Date: 20220303
  Serious: Yes (Other)
  Sender: FDA-Public Use
  Company Number: None

PATIENT
  Age: 64 Year
  Sex: Female
  Weight: 56.7 kg

DRUGS (1)
  1. DULOXETINE [Suspect]
     Active Substance: DULOXETINE
     Indication: Fibromyalgia
     Dates: start: 20210201, end: 20210520

REACTIONS (8)
  - Speech disorder [None]
  - Anger [None]
  - Headache [None]
  - Feeling hot [None]
  - Anger [None]
  - Intermittent explosive disorder [None]
  - Neck pain [None]
  - Aggression [None]

NARRATIVE: CASE EVENT DATE: 20210602
